FAERS Safety Report 9696047 (Version 1)
Quarter: 2013Q4

REPORT INFORMATION
  Report Type: Spontaneous
  Country: GB (occurrence: None)
  Receive Date: 20131115
  Receipt Date: 20131115
  Transmission Date: 20140711
  Serious: Yes (Hospitalization)
  Sender: FDA-Public Use
  Company Number: 2013AP009544

PATIENT
  Age: 48 Year
  Sex: Female

DRUGS (5)
  1. PERINDOPRIL (PERINDOPRIL) [Suspect]
     Route: 048
  2. ATENOLOL (ATENOLOL) [Concomitant]
  3. FLUOXETINE (FLUOXETINE) [Concomitant]
  4. WARFARIN (WARFARIN) [Concomitant]
  5. LANSOPRAZOLE (LANSOPRAZOLE) [Suspect]
     Route: 048

REACTIONS (3)
  - Hypocalcaemia [None]
  - Hypokalaemia [None]
  - Hypomagnesaemia [None]
